FAERS Safety Report 5749178-8 (Version None)
Quarter: 2008Q2

REPORT INFORMATION
  Report Type: 
  Country: None (occurrence: None)
  Receive Date: 20080527
  Receipt Date: 20080515
  Transmission Date: 20081010
  Serious: Yes (Hospitalization, Other)
  Sender: FDA-Public Use
  Company Number: TH-ROCHE-560204

PATIENT
  Age: 42 Year
  Sex: Female

DRUGS (3)
  1. CELLCEPT [Suspect]
     Route: 065
     Dates: end: 20080407
  2. PROGRAF [Concomitant]
  3. PREDNISOLONE [Concomitant]

REACTIONS (6)
  - FATIGUE [None]
  - LUNG INFILTRATION [None]
  - PNEUMONIA CYTOMEGALOVIRAL [None]
  - PYREXIA [None]
  - TENDERNESS [None]
  - WHITE BLOOD CELL COUNT DECREASED [None]
